FAERS Safety Report 24544362 (Version 3)
Quarter: 2024Q4

REPORT INFORMATION
  Report Type: Spontaneous
  Country: CA (occurrence: CA)
  Receive Date: 20241024
  Receipt Date: 20241111
  Transmission Date: 20250114
  Serious: Yes (Death, Hospitalization)
  Sender: PFIZER
  Company Number: CA-PFIZER INC-202400274525

PATIENT
  Age: 94 Year
  Sex: Female

DRUGS (3)
  1. RUXIENCE [Suspect]
     Active Substance: RITUXIMAB-PVVR
     Indication: Granulomatosis with polyangiitis
     Dosage: 1000 MG, DAY 1 AND DAY 15 (DAY 1 RECEIVED IN HOSPITAL)
     Route: 042
     Dates: start: 20241008
  2. RUXIENCE [Suspect]
     Active Substance: RITUXIMAB-PVVR
     Dosage: 1000 MG, DAY 1 AND DAY 15
     Route: 042
     Dates: start: 20241024, end: 20241024
  3. PREDNISONE [Concomitant]
     Active Substance: PREDNISONE
     Dosage: UNK

REACTIONS (5)
  - Death [Fatal]
  - Haemoptysis [Unknown]
  - Infection [Unknown]
  - Condition aggravated [Unknown]
  - Off label use [Unknown]

NARRATIVE: CASE EVENT DATE: 20241001
